FAERS Safety Report 8816579 (Version 1)
Quarter: 2012Q4

REPORT INFORMATION
  Report Type: Spontaneous
  Country: US (occurrence: None)
  Receive Date: 20121001
  Receipt Date: 20121001
  Transmission Date: 20130627
  Serious: Yes (Hospitalization)
  Sender: FDA-Public Use
  Company Number: None

PATIENT
  Age: 65 Year
  Sex: Male
  Weight: 111.2 kg

DRUGS (1)
  1. MINOXIDIL [Suspect]
     Dosage: 5 MG AM PO
     Route: 048
     Dates: start: 20120723, end: 20120924

REACTIONS (1)
  - Oedema peripheral [None]
